FAERS Safety Report 13904537 (Version 1)
Quarter: 2017Q3

REPORT INFORMATION
  Report Type: Report from Study
  Country: US (occurrence: US)
  Receive Date: 20170825
  Receipt Date: 20170825
  Transmission Date: 20171127
  Serious: Yes (Other)
  Sender: FDA-Public Use
  Company Number: US-ROCHE-1984553

PATIENT

DRUGS (3)
  1. RITUXIMAB. [Suspect]
     Active Substance: RITUXIMAB
     Indication: B-CELL LYMPHOMA
     Dosage: ON DAY 1
     Route: 042
  2. BENDAMUSTINE [Suspect]
     Active Substance: BENDAMUSTINE
     Indication: B-CELL LYMPHOMA
     Dosage: ON DAYS 1 AND 2
     Route: 042
  3. COPANLISIB [Suspect]
     Active Substance: COPANLISIB
     Indication: B-CELL LYMPHOMA
     Dosage: ON DAYS 1, 8 AND 15 OF A 28-DAY CYCLE
     Route: 042

REACTIONS (1)
  - Eosinophilia [Recovered/Resolved]
